FAERS Safety Report 12194454 (Version 1)
Quarter: 2016Q1

REPORT INFORMATION
  Report Type: Spontaneous
  Country: None (occurrence: None)
  Receive Date: 20160318
  Receipt Date: 20160318
  Transmission Date: 20160526
  Serious: No
  Sender: FDA-Public Use
  Company Number: None

PATIENT
  Sex: Male

DRUGS (1)
  1. LIDOCAINE PATCH 5% MYLAN [Suspect]
     Active Substance: LIDOCAINE
     Dosage: USE AS DIRECTED TRANSDERMAL
     Route: 062

REACTIONS (1)
  - Drug ineffective [None]
